FAERS Safety Report 7323975-X (Version None)
Quarter: 2011Q1

REPORT INFORMATION
  Report Type: 
  Country: None (occurrence: None)
  Receive Date: 20110301
  Receipt Date: 20110224
  Transmission Date: 20110831
  Serious: Yes (Other)
  Sender: FDA-Public Use
  Company Number: IL-BRISTOL-MYERS SQUIBB COMPANY-15574536

PATIENT
  Age: 29 Year

DRUGS (3)
  1. ZYPREXA [Suspect]
  2. SOLIAN [Suspect]
  3. ABILIFY [Suspect]
     Dates: start: 20110201, end: 20110224

REACTIONS (1)
  - PSYCHOTIC DISORDER [None]
